FAERS Safety Report 17266975 (Version 2)
Quarter: 2020Q1

REPORT INFORMATION
  Report Type: Spontaneous
  Country: US (occurrence: US)
  Receive Date: 20200114
  Receipt Date: 20200114
  Transmission Date: 20200409
  Serious: Yes (Other)
  Sender: FDA-Public Use
  Company Number: US-PFIZER INC-2020011669

PATIENT
  Age: 73 Year
  Sex: Male
  Weight: 79 kg

DRUGS (3)
  1. SERTRALINE HCL [Interacting]
     Active Substance: SERTRALINE HYDROCHLORIDE
     Indication: ANTIDEPRESSANT THERAPY
     Dosage: 5 MG, 1X/DAY
  2. TAMSULOSIN [Interacting]
     Active Substance: TAMSULOSIN
     Indication: PROSTATOMEGALY
     Dosage: 5 MG, 2X/DAY
  3. TOVIAZ [Suspect]
     Active Substance: FESOTERODINE FUMARATE
     Indication: HYPERTONIC BLADDER
     Dosage: 8 MG, 1X/DAY
     Route: 048
     Dates: start: 20191219, end: 20191219

REACTIONS (5)
  - Abdominal distension [Recovered/Resolved]
  - Drug interaction [Unknown]
  - Abdominal pain upper [Recovered/Resolved]
  - Micturition urgency [Not Recovered/Not Resolved]
  - Urinary retention [Recovered/Resolved with Sequelae]

NARRATIVE: CASE EVENT DATE: 20191219
